FAERS Safety Report 8409649-2 (Version None)
Quarter: 2012Q2

REPORT INFORMATION
  Report Type: 
  Country: None (occurrence: None)
  Receive Date: 20120605
  Receipt Date: 20120523
  Transmission Date: 20120825
  Serious: Yes (Death, Hospitalization, Other)
  Sender: FDA-Public Use
  Company Number: US-RANBAXY-2012US-56797

PATIENT
  Age: 30 Year
  Sex: Male

DRUGS (6)
  1. FENTANYL-100 [Suspect]
     Indication: ANAESTHESIA
     Dosage: UNK
     Route: 065
  2. MIDAZOLAM HYDROCHLORIDE [Suspect]
     Indication: ANAESTHESIA
     Dosage: UNK
     Route: 065
  3. SUCCINYLCHOLINE CHLORIDE [Suspect]
     Indication: ANAESTHESIA
     Dosage: UNK
     Route: 065
  4. SEVOFLURANE [Suspect]
     Indication: ANAESTHESIA
     Dosage: UNK
     Route: 065
  5. LIDOCAINE [Suspect]
     Indication: ANAESTHESIA
     Dosage: UNK
     Route: 065
  6. PROPOFOL [Suspect]
     Indication: ANAESTHESIA
     Dosage: UNK
     Route: 065

REACTIONS (8)
  - OXYGEN SATURATION DECREASED [None]
  - STRESS CARDIOMYOPATHY [None]
  - VENTRICULAR TACHYCARDIA [None]
  - VENTRICULAR FIBRILLATION [None]
  - MITRAL VALVE INCOMPETENCE [None]
  - CARDIAC FAILURE [None]
  - CYANOSIS [None]
  - VENTRICULAR EXTRASYSTOLES [None]
